FAERS Safety Report 8990645 (Version 2)
Quarter: 2013Q1

REPORT INFORMATION
  Report Type: Spontaneous
  Country: GB (occurrence: GB)
  Receive Date: 20121228
  Receipt Date: 20130107
  Transmission Date: 20140127
  Serious: Yes (Other)
  Sender: FDA-Public Use
  Company Number: GB-JNJFOC-20121210832

PATIENT
  Age: 47 Year
  Sex: Female
  Weight: 93.43 kg

DRUGS (4)
  1. CETIRIZINE HYDROCHLORIDE [Suspect]
     Indication: ASTHMA
     Route: 048
     Dates: start: 2011, end: 20121202
  2. CETIRIZINE HYDROCHLORIDE [Suspect]
     Indication: HYPERSENSITIVITY
     Route: 048
     Dates: start: 2011, end: 20121202
  3. ANTIBIOTICS NOS [Concomitant]
     Indication: URINARY TRACT INFECTION
     Route: 065
  4. INHALER NOS [Concomitant]
     Route: 065

REACTIONS (5)
  - Withdrawal syndrome [Not Recovered/Not Resolved]
  - Weight increased [Recovering/Resolving]
  - Pruritus [Not Recovered/Not Resolved]
  - Drug ineffective [Recovered/Resolved]
  - Off label use [Unknown]
